FAERS Safety Report 11815982 (Version 1)
Quarter: 2015Q4

REPORT INFORMATION
  Report Type: Spontaneous
  Country: US (occurrence: US)
  Receive Date: 20151209
  Receipt Date: 20151209
  Transmission Date: 20160305
  Serious: No
  Sender: FDA-Public Use
  Company Number: US-ACTELION PHARMACEUTICALS US, INC.-A-NJ2015-127804

PATIENT
  Age: 57 Year
  Sex: Male

DRUGS (1)
  1. VELETRI [Suspect]
     Active Substance: EPOPROSTENOL
     Indication: PULMONARY HYPERTENSION
     Dosage: 38.4 NG/KG, PER MIN
     Route: 042
     Dates: start: 20140516

REACTIONS (3)
  - Device occlusion [Unknown]
  - Product deposit [Unknown]
  - Device alarm issue [Unknown]
